FAERS Safety Report 10239269 (Version 1)
Quarter: 2014Q2

REPORT INFORMATION
  Report Type: Spontaneous
  Country: AU (occurrence: AU)
  Receive Date: 20140616
  Receipt Date: 20140616
  Transmission Date: 20141212
  Serious: Yes (Other)
  Sender: FDA-Public Use
  Company Number: AU-PFIZER INC-2014159036

PATIENT
  Sex: Female

DRUGS (2)
  1. RALOVERA [Suspect]
     Indication: HORMONE REPLACEMENT THERAPY
     Dosage: 2.5 MG, UNK
  2. PROGYNOVA [Suspect]
     Indication: HORMONE REPLACEMENT THERAPY
     Dosage: 1 MG, UNK

REACTIONS (3)
  - Endometriosis [Unknown]
  - Disease recurrence [Unknown]
  - Insomnia [Unknown]
